FAERS Safety Report 9213335 (Version 2)
Quarter: 2013Q2

REPORT INFORMATION
  Report Type: Report from Study
  Country: JP (occurrence: JP)
  Receive Date: 20130405
  Receipt Date: 20130605
  Transmission Date: 20140414
  Serious: Yes (Hospitalization)
  Sender: FDA-Public Use
  Company Number: PHHY2013JP032865

PATIENT
  Age: 86 Year
  Sex: Female
  Weight: 50 kg

DRUGS (11)
  1. ALISKIREN [Suspect]
     Indication: HYPERTENSION
     Dosage: 150 MG, QD
     Route: 048
     Dates: start: 20100129, end: 20100322
  2. ALISKIREN [Suspect]
     Dosage: 150 MG, QD
     Route: 048
     Dates: start: 20100415
  3. AVAPRO [Concomitant]
     Indication: HYPERTENSION
     Dosage: 100 MG, UNK
     Route: 048
     Dates: start: 20100324, end: 20110508
  4. AMLODIN [Concomitant]
     Indication: HYPERTENSION
     Dosage: 5 MG, UNK
     Route: 048
     Dates: start: 20100324
  5. AMLODIN [Concomitant]
     Dosage: 1 DF, UNK
     Route: 048
     Dates: end: 20100310
  6. CADUET [Concomitant]
     Indication: HYPERTENSION
     Dosage: 1 DF, UNK
     Route: 048
     Dates: start: 20100202
  7. CADUET [Concomitant]
     Dosage: 1 DF, UNK
     Route: 048
     Dates: end: 20100323
  8. GASLON N [Concomitant]
     Dosage: 4 MG, UNK
     Route: 048
     Dates: start: 20101201
  9. MYSLEE [Concomitant]
     Dosage: 5 MG, UNK
     Route: 048
     Dates: start: 20101201
  10. MAGLAX [Concomitant]
     Dosage: 990 MG, UNK
     Route: 048
     Dates: start: 20100130, end: 20100212
  11. ARICEPT [Concomitant]
     Dosage: 3 MG, UNK
     Route: 048
     Dates: start: 20100225, end: 20100316

REACTIONS (3)
  - Spinal osteoarthritis [Not Recovered/Not Resolved]
  - Asthenia [Not Recovered/Not Resolved]
  - Dizziness [Recovered/Resolved]
